FAERS Safety Report 5137912-X (Version None)
Quarter: 2006Q4

REPORT INFORMATION
  Report Type: 
  Country: None (occurrence: None)
  Receive Date: 20061030
  Receipt Date: 20060209
  Transmission Date: 20070319
  Serious: Yes (Other)
  Sender: FDA-Public Use
  Company Number: US-GLAXOSMITHKLINE-A0593067A

PATIENT
  Age: 47 Year
  Sex: Female
  Weight: 59.1 kg

DRUGS (2)
  1. ADVAIR HFA [Suspect]
     Dosage: 1PUFF TWICE PER DAY
     Route: 055
     Dates: start: 20051102, end: 20051215
  2. FLOVENT [Concomitant]
     Dosage: 3PUFF THREE TIMES PER DAY
     Route: 055
     Dates: start: 20051215

REACTIONS (2)
  - HEART RATE INCREASED [None]
  - SUPRAVENTRICULAR TACHYCARDIA [None]
